FAERS Safety Report 15150358 (Version 1)
Quarter: 2018Q3

REPORT INFORMATION
  Report Type: Other
  Country: IN (occurrence: IN)
  Receive Date: 20180716
  Receipt Date: 20180716
  Transmission Date: 20181010
  Serious: Yes (Other)
  Sender: FDA-Public Use
  Company Number: IN-EXELTIS USA INC.-2052136

PATIENT
  Age: 45 Year
  Sex: Male

DRUGS (1)
  1. NUVESSA [Suspect]
     Active Substance: METRONIDAZOLE
     Indication: HEPATIC AMOEBIASIS

REACTIONS (9)
  - Coordination abnormal [None]
  - Confusional state [None]
  - Gait disturbance [None]
  - Disorientation [None]
  - Irregular sleep wake rhythm disorder [None]
  - Cerebellar ataxia [None]
  - Toxic encephalopathy [None]
  - Speech disorder [None]
  - Agitation [None]
